FAERS Safety Report 12715090 (Version 1)
Quarter: 2016Q3

REPORT INFORMATION
  Report Type: Report from Study
  Country: US (occurrence: US)
  Receive Date: 20160905
  Receipt Date: 20160905
  Transmission Date: 20161109
  Serious: Yes (Other)
  Sender: FDA-Public Use
  Company Number: US-AMGEN-USASL2016116139

PATIENT
  Age: 56 Year
  Sex: Female

DRUGS (1)
  1. ENBREL [Suspect]
     Active Substance: ETANERCEPT
     Indication: RHEUMATOID ARTHRITIS
     Dosage: 50 MG, QWK
     Route: 065
     Dates: end: 201606

REACTIONS (5)
  - Contusion [Unknown]
  - Cholelithiasis [Unknown]
  - Malaise [Unknown]
  - Injection site bruising [Unknown]
  - Unevaluable event [Unknown]

NARRATIVE: CASE EVENT DATE: 201606
